FAERS Safety Report 5194471-3 (Version None)
Quarter: 2006Q4

REPORT INFORMATION
  Report Type: 
  Country: None (occurrence: None)
  Receive Date: 20061221
  Receipt Date: 20061214
  Transmission Date: 20070319
  Serious: Yes (Hospitalization)
  Sender: FDA-Public Use
  Company Number: URSO-2006-047

PATIENT
  Age: 59 Year
  Sex: Male

DRUGS (15)
  1. URSODIOL [Suspect]
     Indication: HEPATITIS C
     Dosage: 300 MG, 600 MG, PO
     Route: 048
     Dates: end: 20051005
  2. URSODIOL [Suspect]
     Indication: HEPATITIS C
     Dosage: 300 MG, 600 MG, PO
     Route: 048
     Dates: start: 20051006, end: 20061016
  3. NIKORANMART (NICORANDIL) [Suspect]
     Indication: PRINZMETAL ANGINA
     Dosage: 15 MG, PO
     Route: 048
     Dates: start: 20040721, end: 20061016
  4. NIKORANMART (NICORANDIL) [Suspect]
     Indication: PRINZMETAL ANGINA
     Dosage: 15 MG, PO
     Route: 048
     Dates: start: 20061020
  5. BUFFERIN [Suspect]
     Indication: PRINZMETAL ANGINA
     Dosage: 81 MG, PO
     Route: 048
     Dates: start: 20031224, end: 20061016
  6. BUFFERIN [Suspect]
     Indication: PRINZMETAL ANGINA
     Dosage: 81 MG, PO
     Route: 048
     Dates: start: 20061020, end: 20061023
  7. PROMAC ( POLAPREZINC [Suspect]
     Indication: GASTRIC ULCER
     Dosage: 1.0 G, PO
     Route: 048
     Dates: start: 20040616, end: 20061016
  8. PRAVASTATIN SODIUM [Suspect]
     Indication: HYPERLIPIDAEMIA
     Dosage: 10 MG, PO
     Route: 048
     Dates: start: 20051014, end: 20061016
  9. LANSOPRAZOLE [Suspect]
     Indication: GASTRIC ULCER
     Dosage: 60 MG, 30 MG, 15 MG, PO
     Route: 048
     Dates: start: 20060630, end: 20060706
  10. LANSOPRAZOLE [Suspect]
     Indication: GASTRIC ULCER
     Dosage: 60 MG, 30 MG, 15 MG, PO
     Route: 048
     Dates: start: 20060707, end: 20060804
  11. LANSOPRAZOLE [Suspect]
     Indication: GASTRIC ULCER
     Dosage: 60 MG, 30 MG, 15 MG, PO
     Route: 048
     Dates: start: 20060805, end: 20061016
  12. STRONGER NEO MINOPHAGEN C (GLYCYRRHIZIN, GLYCINE, CYSTEINE COMBINED DR [Suspect]
     Indication: HEPATITIS C
     Dosage: 3A, 5A, IV
     Route: 042
     Dates: start: 20060914, end: 20061001
  13. STRONGER NEO MINOPHAGEN C (GLYCYRRHIZIN, GLYCINE, CYSTEINE COMBINED DR [Suspect]
     Indication: HEPATITIS C
     Dosage: 3A, 5A, IV
     Route: 042
     Dates: start: 20061002, end: 20061013
  14. ADELAVIN (LIVER EXTRACT, FLAVIN ADENINE DINUCLEOTIDE) [Suspect]
     Indication: HEPATITIS C
     Dosage: 1 A, IV
     Route: 042
     Dates: start: 20060914, end: 20061013
  15. COSPANON (FLOPROPIONE [Suspect]
     Indication: HEPATITIS C
     Dosage: 240 MG, PO
     Route: 048
     Dates: start: 20061006, end: 20061016

REACTIONS (3)
  - CONDITION AGGRAVATED [None]
  - HEPATITIS C [None]
  - THERAPY NON-RESPONDER [None]
